FAERS Safety Report 5039174-0 (Version None)
Quarter: 2006Q2

REPORT INFORMATION
  Report Type: 
  Country: None (occurrence: None)
  Receive Date: 20060629
  Receipt Date: 20060621
  Transmission Date: 20061013
  Serious: Yes (Disabling)
  Sender: FDA-Public Use
  Company Number: GBWYE759921JUN06

PATIENT
  Age: 59 Year
  Sex: Female

DRUGS (4)
  1. ENBREL [Suspect]
     Indication: RHEUMATOID ARTHRITIS
     Dosage: 50MG FREQUENCY UNKNOWN
     Route: 058
     Dates: start: 20031014
  2. FOLIC ACID [Concomitant]
     Route: 048
     Dates: start: 20010101
  3. METHOTREXATE [Concomitant]
     Indication: RHEUMATOID ARTHRITIS
     Route: 048
     Dates: start: 20010101
  4. DICLOFENAC [Concomitant]
     Route: 048

REACTIONS (2)
  - ARTERIOSCLEROTIC RETINOPATHY [None]
  - BLINDNESS UNILATERAL [None]
